FAERS Safety Report 7878714-0 (Version None)
Quarter: 2011Q4

REPORT INFORMATION
  Report Type: 
  Country: None (occurrence: None)
  Receive Date: 20111021
  Receipt Date: 20110727
  Transmission Date: 20120403
  Serious: No
  Sender: FDA-Public Use
  Company Number: US-005952

PATIENT
  Sex: Male
  Weight: 79.3795 kg

DRUGS (4)
  1. DEGARELIX  (240 MG, 80 MG) [Suspect]
     Indication: PROSTATE CANCER
     Dosage: 240 MG 1X SUBCUTANEOUS; 80 MG 1X/MONTH SUBCUTANEOUS
     Route: 058
     Dates: start: 20110214, end: 20110214
  2. DEGARELIX  (240 MG, 80 MG) [Suspect]
     Indication: PROSTATE CANCER
     Dosage: 240 MG 1X SUBCUTANEOUS; 80 MG 1X/MONTH SUBCUTANEOUS
     Route: 058
     Dates: start: 20110301, end: 20110714
  3. AVODART [Concomitant]
  4. CASODEX [Concomitant]

REACTIONS (1)
  - NO THERAPEUTIC RESPONSE [None]
